FAERS Safety Report 6535570-0 (Version None)
Quarter: 2010Q1

REPORT INFORMATION
  Report Type: 
  Country: None (occurrence: None)
  Receive Date: 20100113
  Receipt Date: 20091230
  Transmission Date: 20100710
  Serious: Yes (Hospitalization)
  Sender: FDA-Public Use
  Company Number: FR-BAYER-201010807GPV

PATIENT
  Age: 94 Year
  Sex: Female

DRUGS (6)
  1. CIFLOX [Suspect]
     Indication: URINARY TRACT INFECTION
     Route: 048
     Dates: start: 20040401, end: 20090502
  2. PREVISCAN [Suspect]
     Indication: DRUG USE FOR UNKNOWN INDICATION
     Route: 048
     Dates: end: 20090502
  3. PREVISCAN [Suspect]
     Route: 048
     Dates: start: 20090504
  4. APROVEL [Concomitant]
     Indication: DRUG USE FOR UNKNOWN INDICATION
  5. ORAP [Concomitant]
     Indication: URINARY TRACT INFECTION
  6. RABEPRAZOLE SODIUM [Concomitant]
     Indication: URINARY TRACT INFECTION

REACTIONS (3)
  - HAEMATOMA [None]
  - HAEMOPTYSIS [None]
  - INTERNATIONAL NORMALISED RATIO INCREASED [None]
